FAERS Safety Report 14073259 (Version 2)
Quarter: 2017Q4

REPORT INFORMATION
  Report Type: Spontaneous
  Country: US (occurrence: US)
  Receive Date: 20171010
  Receipt Date: 20171129
  Transmission Date: 20180321
  Serious: No
  Sender: FDA-Public Use
  Company Number: US-JNJFOC-20170807531

PATIENT
  Sex: Male
  Weight: 84.82 kg

DRUGS (1)
  1. TYLENOL EXTRA STRENGTH [Suspect]
     Active Substance: ACETAMINOPHEN
     Indication: PRODUCT USED FOR UNKNOWN INDICATION
     Dosage: ON OCCASION
     Route: 048

REACTIONS (4)
  - Micturition frequency decreased [Unknown]
  - Malaise [Unknown]
  - Urine output decreased [Unknown]
  - Prostatomegaly [Unknown]
